FAERS Safety Report 9096764 (Version 1)
Quarter: 2013Q1

REPORT INFORMATION
  Report Type: Spontaneous
  Country: SE (occurrence: SE)
  Receive Date: 20130211
  Receipt Date: 20130211
  Transmission Date: 20140127
  Serious: Yes (Other)
  Sender: FDA-Public Use
  Company Number: SE-PFIZER INC-2013053783

PATIENT
  Age: 65 Year
  Sex: Female

DRUGS (1)
  1. DEPO-MEDROL [Suspect]
     Dosage: SINGLE
     Dates: start: 20111006, end: 20111006

REACTIONS (1)
  - Retinal haemorrhage [Unknown]
